FAERS Safety Report 19797064 (Version 2)
Quarter: 2021Q3

REPORT INFORMATION
  Report Type: Report from Study
  Country: TW (occurrence: TW)
  Receive Date: 20210907
  Receipt Date: 20210914
  Transmission Date: 20211014
  Serious: Yes (Death, Hospitalization, Other)
  Sender: FDA-Public Use
  Company Number: NVSC2021TW201224

PATIENT
  Age: 73 Year
  Sex: Female
  Weight: 45.9 kg

DRUGS (3)
  1. MEKINIST [Suspect]
     Active Substance: TRAMETINIB DIMETHYL SULFOXIDE
     Indication: NON-SMALL CELL LUNG CANCER
     Dosage: 2 MG
     Route: 048
     Dates: start: 20171025, end: 20210831
  2. DABRAFENIB [Suspect]
     Active Substance: DABRAFENIB
     Indication: NON-SMALL CELL LUNG CANCER
     Dosage: 75 MG
     Route: 048
     Dates: start: 20171025, end: 20210831
  3. MORPHINE [Concomitant]
     Active Substance: MORPHINE
     Indication: PALLIATIVE CARE
     Dosage: UNK (PUMP)
     Route: 065

REACTIONS (9)
  - Malignant neoplasm progression [Fatal]
  - Dyspnoea [Unknown]
  - Dysuria [Unknown]
  - Asthenia [Unknown]
  - Cardiac arrest [Fatal]
  - Pneumonia [Unknown]
  - Non-small cell lung cancer [Fatal]
  - Respiratory failure [Unknown]
  - Oedema peripheral [Unknown]

NARRATIVE: CASE EVENT DATE: 20210831
